FAERS Safety Report 10075422 (Version 1)
Quarter: 2014Q2

REPORT INFORMATION
  Report Type: Spontaneous
  Country: US (occurrence: US)
  Receive Date: 20140414
  Receipt Date: 20140414
  Transmission Date: 20141212
  Serious: Yes (Other)
  Sender: FDA-Public Use
  Company Number: US-DRREDDYS-USA/USA/14/0039582

PATIENT
  Sex: Male

DRUGS (1)
  1. CLOPIDOGREL BISULFATE TABLETS 300 MG [Suspect]
     Indication: STENT PLACEMENT
     Route: 048
     Dates: start: 20140404

REACTIONS (3)
  - Thrombosis [Unknown]
  - Drug ineffective [Unknown]
  - Product quality issue [Unknown]
